FAERS Safety Report 24677940 (Version 1)
Quarter: 2024Q4

REPORT INFORMATION
  Report Type: Spontaneous
  Country: IT (occurrence: IT)
  Receive Date: 20241129
  Receipt Date: 20241129
  Transmission Date: 20250114
  Serious: Yes (Other)
  Sender: AUROBINDO
  Company Number: IT-SANDOZ-SDZ2024IT095082

PATIENT
  Age: 58 Year
  Sex: Male

DRUGS (5)
  1. ENTECAVIR [Suspect]
     Active Substance: ENTECAVIR
     Indication: Hepatitis B
     Dosage: 0.5 MG, QW (AS SINGLE DOSE AT THE END OF HEMODIALYSIS SESSION)
     Route: 065
     Dates: start: 2011
  2. ENTECAVIR [Suspect]
     Active Substance: ENTECAVIR
     Dosage: 0.5 MG EVERY 10 DAYS
     Route: 065
  3. ENTECAVIR [Suspect]
     Active Substance: ENTECAVIR
     Dosage: 0.5 MG, QD
     Route: 065
  4. TENOFOVIR [Concomitant]
     Active Substance: TENOFOVIR
     Indication: Hepatitis B
     Dosage: 245 MG/48 HOURS
     Route: 065
  5. TENOFOVIR [Concomitant]
     Active Substance: TENOFOVIR
     Dosage: 245 MG, QD
     Route: 065

REACTIONS (2)
  - Hepatitis B [Recovered/Resolved]
  - Drug resistance [Unknown]
